FAERS Safety Report 7960518-1 (Version None)
Quarter: 2011Q4

REPORT INFORMATION
  Report Type: 
  Country: None (occurrence: None)
  Receive Date: 20111206
  Receipt Date: 20111129
  Transmission Date: 20120403
  Serious: Yes (Hospitalization, Other)
  Sender: FDA-Public Use
  Company Number: JP-CELGENEUS-087-21880-11040165

PATIENT
  Sex: Male

DRUGS (54)
  1. VELCADE [Suspect]
     Indication: REFRACTORY CANCER
     Dosage: 1.3 MILLIGRAM/SQ. METER
     Route: 041
     Dates: start: 20101202, end: 20101202
  2. DEXAMETHASONE SODIUM PHOSPHATE [Suspect]
     Dosage: 13.2 MILLIGRAM
     Route: 041
     Dates: start: 20101209, end: 20101209
  3. LANSOPRAZOLE [Concomitant]
     Indication: PROPHYLAXIS
     Dosage: 30 MILLIGRAM
     Route: 048
     Dates: start: 20101129, end: 20110420
  4. LENDORMIN D [Concomitant]
     Dosage: .25 MILLIGRAM
     Route: 048
     Dates: start: 20101220, end: 20110420
  5. DECADRON [Concomitant]
     Dosage: 16.5 MILLIGRAM
     Route: 041
     Dates: start: 20101220, end: 20101223
  6. KYTRIL [Concomitant]
     Dosage: 3 MILLIGRAM
     Route: 041
     Dates: start: 20110124, end: 20110124
  7. KYTRIL [Concomitant]
     Dosage: 3 MILLIGRAM
     Route: 041
     Dates: start: 20110207, end: 20110217
  8. REVLIMID [Suspect]
     Indication: REFRACTORY CANCER
     Dosage: 25 MILLIGRAM
     Route: 048
     Dates: start: 20101220, end: 20110102
  9. VELCADE [Suspect]
     Dosage: 2.129 MILLIGRAM
     Route: 041
     Dates: start: 20101220, end: 20101229
  10. VELCADE [Suspect]
     Dosage: 2.129 MILLIGRAM
     Route: 041
     Dates: start: 20110113, end: 20110124
  11. DEXAMETHASONE SODIUM PHOSPHATE [Suspect]
     Indication: REFRACTORY CANCER
     Dosage: 13.2 MILLIGRAM
     Route: 041
     Dates: start: 20101202, end: 20101203
  12. DEXAMETHASONE SODIUM PHOSPHATE [Suspect]
     Dosage: 13.2 MILLIGRAM
     Route: 041
     Dates: start: 20101206, end: 20101207
  13. DECADRON [Concomitant]
     Dosage: 3.3 MILLIGRAM
     Route: 041
     Dates: start: 20101209, end: 20101209
  14. DECADRON [Concomitant]
     Dosage: 16.5 MILLIGRAM
     Route: 041
     Dates: start: 20101227, end: 20101230
  15. DECADRON [Concomitant]
     Dosage: 16.5 MILLIGRAM
     Route: 041
     Dates: start: 20110113, end: 20110114
  16. IRRADIATED PLATELET CONCENTRATE [Concomitant]
     Indication: MULTIPLE MYELOMA
     Dosage: 10 UNIT
     Route: 041
     Dates: start: 20110221, end: 20110221
  17. REVLIMID [Suspect]
     Dosage: 25 MILLIGRAM
     Route: 048
     Dates: start: 20110207, end: 20110220
  18. VELCADE [Suspect]
     Dosage: 2.129 MILLIGRAM
     Route: 041
     Dates: start: 20110207, end: 20110217
  19. DECADRON [Concomitant]
     Indication: REFRACTORY CANCER
     Dosage: 3.3 MILLIGRAM
     Route: 041
     Dates: start: 20101202, end: 20101203
  20. MUCOSTA [Concomitant]
     Indication: PROPHYLAXIS
     Dosage: 300 MILLIGRAM
     Route: 048
     Dates: start: 20101129, end: 20110206
  21. KYTRIL [Concomitant]
     Indication: PROPHYLAXIS
     Dosage: 3 MILLIGRAM
     Route: 041
     Dates: start: 20101129, end: 20101129
  22. KYTRIL [Concomitant]
     Dosage: 3 MILLIGRAM
     Route: 041
     Dates: start: 20101209, end: 20101209
  23. KYTRIL [Concomitant]
     Dosage: 3 MILLIGRAM
     Route: 041
     Dates: start: 20110113, end: 20110114
  24. DEXAMETHASONE SODIUM PHOSPHATE [Suspect]
     Indication: MULTIPLE MYELOMA
     Dosage: 13.2 MILLIGRAM
     Route: 041
     Dates: start: 20101129, end: 20101130
  25. DECADRON [Concomitant]
     Dosage: 16.5 MILLIGRAM
     Route: 041
     Dates: start: 20110124, end: 20110125
  26. ZOVIRAX [Concomitant]
     Dosage: 200 MILLIGRAM
     Route: 048
     Dates: start: 20110207, end: 20110420
  27. ASPIRIN [Concomitant]
     Dosage: 100 MILLIGRAM
     Route: 048
     Dates: start: 20110222, end: 20110420
  28. ISODINE [Concomitant]
     Indication: PROPHYLAXIS
     Dosage: ADEQUATE DOSE
     Route: 048
     Dates: start: 20101129, end: 20110206
  29. ZOMETA [Concomitant]
     Indication: MULTIPLE MYELOMA
     Dosage: 4 MILLIGRAM
     Route: 041
     Dates: start: 20101203, end: 20101203
  30. ZOMETA [Concomitant]
     Dosage: 4 MILLIGRAM
     Route: 041
     Dates: start: 20110207, end: 20110207
  31. VELCADE [Suspect]
     Dosage: 1.3 MILLIGRAM/SQ. METER
     Route: 041
     Dates: start: 20101206, end: 20101209
  32. DECADRON [Concomitant]
     Dosage: 3.3 MILLIGRAM
     Route: 041
     Dates: start: 20101206, end: 20101207
  33. DECADRON [Concomitant]
     Dosage: 16.5 MILLIGRAM
     Route: 041
     Dates: start: 20110120, end: 20110121
  34. SULFAMETHOXAZOLE AND TRIMETHOPRIM [Concomitant]
     Dosage: 1 TABLET
     Route: 048
     Dates: start: 20110207, end: 20110420
  35. ASPIRIN [Concomitant]
     Indication: PROPHYLAXIS
     Dosage: 100 MILLIGRAM
     Route: 048
     Dates: start: 20101129, end: 20110206
  36. MUCOSTA [Concomitant]
     Dosage: 300 MILLIGRAM
     Route: 048
     Dates: start: 20110207, end: 20110420
  37. ITRACONAZOLE [Concomitant]
     Indication: PROPHYLAXIS
     Dosage: 20 MILLILITER
     Route: 048
     Dates: start: 20110202, end: 20110222
  38. KYTRIL [Concomitant]
     Dosage: 3 MILLIGRAM
     Route: 041
     Dates: start: 20101202, end: 20101202
  39. KYTRIL [Concomitant]
     Dosage: 3 MILLIGRAM
     Route: 041
     Dates: start: 20101206, end: 20101206
  40. KYTRIL [Concomitant]
     Dosage: 3 MILLIGRAM
     Route: 041
     Dates: start: 20110120, end: 20110120
  41. VELCADE [Suspect]
     Indication: MULTIPLE MYELOMA
     Dosage: 1.3 MILLIGRAM/SQ. METER
     Route: 041
     Dates: start: 20101129, end: 20101129
  42. DECADRON [Concomitant]
     Dosage: 16.5 MILLIGRAM
     Route: 041
     Dates: start: 20110117, end: 20110118
  43. DECADRON [Concomitant]
     Dosage: 3.3 MILLIGRAM
     Route: 041
     Dates: start: 20110207, end: 20110217
  44. SULFAMETHOXAZOLE AND TRIMETHOPRIM [Concomitant]
     Indication: PROPHYLAXIS
     Dosage: 1 TABLET
     Route: 048
     Dates: start: 20101129, end: 20110206
  45. REVLIMID [Suspect]
     Indication: MULTIPLE MYELOMA
     Dosage: 25 MILLIGRAM
     Route: 048
     Dates: start: 20101129, end: 20101212
  46. REVLIMID [Suspect]
     Dosage: 25 MILLIGRAM
     Route: 048
     Dates: start: 20110113, end: 20110126
  47. DECADRON [Concomitant]
     Indication: MULTIPLE MYELOMA
     Dosage: 3.3 MILLIGRAM
     Route: 041
     Dates: start: 20101129, end: 20101130
  48. DECADRON [Concomitant]
     Dosage: 13.2 MILLIGRAM
     Route: 041
     Dates: start: 20110207, end: 20110217
  49. ZOVIRAX [Concomitant]
     Indication: PROPHYLAXIS
     Dosage: 200 MILLIGRAM
     Route: 048
     Dates: start: 20101129, end: 20110206
  50. FUNGIZONE [Concomitant]
     Indication: PROPHYLAXIS
     Dosage: 16 MILLILITER
     Route: 048
     Dates: start: 20101129, end: 20101226
  51. ZOMETA [Concomitant]
     Indication: PROPHYLAXIS
     Dosage: 4 MILLIGRAM
     Route: 041
     Dates: start: 20110120, end: 20110120
  52. KYTRIL [Concomitant]
     Dosage: 3 MILLIGRAM
     Route: 041
     Dates: start: 20101220, end: 20101229
  53. KYTRIL [Concomitant]
     Dosage: 3 MILLIGRAM
     Route: 041
     Dates: start: 20110117, end: 20110118
  54. IRRADIATED ERYTHROCYTE CONCENTRATE [Concomitant]
     Indication: MULTIPLE MYELOMA
     Dosage: 2 UNIT
     Route: 041
     Dates: start: 20110221, end: 20110221

REACTIONS (6)
  - HYPOGAMMAGLOBULINAEMIA [None]
  - DIARRHOEA [None]
  - CONJUNCTIVITIS [None]
  - BLOOD CREATININE INCREASED [None]
  - PLATELET COUNT DECREASED [None]
  - HAEMOGLOBIN DECREASED [None]
